FAERS Safety Report 15966277 (Version 3)
Quarter: 2019Q2

REPORT INFORMATION
  Report Type: Spontaneous
  Country: DE (occurrence: DE)
  Receive Date: 20190215
  Receipt Date: 20190612
  Transmission Date: 20190711
  Serious: Yes (Other)
  Sender: FDA-Public Use
  Company Number: DE-AMGEN-DEUSP2019007977

PATIENT
  Sex: Female
  Weight: 63 kg

DRUGS (7)
  1. ARANESP [Suspect]
     Active Substance: DARBEPOETIN ALFA
     Indication: NEPHROGENIC ANAEMIA
     Dosage: 30 MICROGRAM
     Route: 065
  2. CLONIDINE. [Concomitant]
     Active Substance: CLONIDINE
     Indication: BLOOD PRESSURE INCREASED
     Dosage: UNK
  3. NEPHROTRANS [Concomitant]
     Active Substance: SODIUM BICARBONATE
     Dosage: UNK
  4. INSULIN [Concomitant]
     Active Substance: INSULIN NOS
     Indication: DIABETES MELLITUS
     Dosage: UNK
  5. RAMIPRIL. [Concomitant]
     Active Substance: RAMIPRIL
     Indication: ACIDOSIS
     Dosage: UNK
  6. FUROSEMID [Concomitant]
     Active Substance: FUROSEMIDE
     Dosage: UNK
  7. CORTISONE [Concomitant]
     Active Substance: CORTISONE\HYDROCORTISONE
     Dosage: UNK

REACTIONS (8)
  - Wrong technique in product usage process [Unknown]
  - Dizziness [Unknown]
  - Needle issue [Recovered/Resolved]
  - Malaise [Unknown]
  - Renal failure [Unknown]
  - Incorrect route of product administration [Unknown]
  - Injection site haemorrhage [Recovered/Resolved]
  - Injection site pain [Recovered/Resolved]
